FAERS Safety Report 17197469 (Version 6)
Quarter: 2020Q1

REPORT INFORMATION
  Report Type: Spontaneous
  Country: US (occurrence: US)
  Receive Date: 20191224
  Receipt Date: 20200323
  Transmission Date: 20200409
  Serious: Yes (Other)
  Sender: FDA-Public Use
  Company Number: NVSC2019US078513

PATIENT
  Sex: Male

DRUGS (1)
  1. DUREZOL [Suspect]
     Active Substance: DIFLUPREDNATE
     Indication: PRODUCT USED FOR UNKNOWN INDICATION
     Dosage: 0.05 OT
     Route: 065

REACTIONS (8)
  - Eye pain [Unknown]
  - Administration site pain [Unknown]
  - Retinal injury [Unknown]
  - Retinal tear [Unknown]
  - Eye disorder [Unknown]
  - Visual impairment [Unknown]
  - Eye irritation [Unknown]
  - Headache [Unknown]
